FAERS Safety Report 6585265-2 (Version None)
Quarter: 2010Q1

REPORT INFORMATION
  Report Type: 
  Country: None (occurrence: None)
  Receive Date: 20100216
  Receipt Date: 20100216
  Transmission Date: 20100710
  Serious: No
  Sender: FDA-Public Use
  Company Number: None

PATIENT
  Age: 62 Year
  Sex: Male
  Weight: 143 kg

DRUGS (1)
  1. IMMUNE GLOBULIN NOS [Suspect]
     Indication: GUILLAIN-BARRE SYNDROME
     Dosage: 60 GM EVERY DAY IV
     Route: 042
     Dates: start: 20100118, end: 20100121

REACTIONS (1)
  - RENAL FAILURE ACUTE [None]
